FAERS Safety Report 8487205-8 (Version None)
Quarter: 2012Q3

REPORT INFORMATION
  Report Type: 
  Country: None (occurrence: None)
  Receive Date: 20120705
  Receipt Date: 20120627
  Transmission Date: 20120928
  Serious: Yes (Hospitalization)
  Sender: FDA-Public Use
  Company Number: JP-ROCHE-1062735

PATIENT
  Sex: Male

DRUGS (4)
  1. VISUDYNE [Concomitant]
     Indication: AGE-RELATED MACULAR DEGENERATION
     Dates: start: 20070301, end: 20070301
  2. HYALEIN [Concomitant]
     Dates: start: 20100615
  3. RANIBIZUMAB [Suspect]
     Indication: AGE-RELATED MACULAR DEGENERATION
     Dosage: RECEIVED 10 INJECTIONS.
     Route: 050
     Dates: start: 20100411
  4. LEVOFLOXACIN [Concomitant]
     Dates: start: 20100501, end: 20100701

REACTIONS (1)
  - CEREBRAL INFARCTION [None]
